FAERS Safety Report 21853533 (Version 2)
Quarter: 2023Q1

REPORT INFORMATION
  Report Type: Spontaneous
  Country: JP (occurrence: JP)
  Receive Date: 20230112
  Receipt Date: 20230208
  Transmission Date: 20230417
  Serious: Yes (Hospitalization, Other)
  Sender: FDA-Public Use
  Company Number: JP-Accord-295174

PATIENT
  Age: 82 Year
  Sex: Male

DRUGS (3)
  1. QUETIAPINE [Suspect]
     Active Substance: QUETIAPINE
     Indication: Cognitive disorder
  2. CARBAMAZEPINE [Concomitant]
     Active Substance: CARBAMAZEPINE
     Indication: Cognitive disorder
  3. MEMANTINE [Concomitant]
     Active Substance: MEMANTINE
     Indication: Cognitive disorder

REACTIONS (2)
  - Drug ineffective [Unknown]
  - Hepatic function abnormal [Recovered/Resolved]
